FAERS Safety Report 18620316 (Version 1)
Quarter: 2020Q4

REPORT INFORMATION
  Report Type: Spontaneous
  Country: US (occurrence: US)
  Receive Date: 20201215
  Receipt Date: 20201215
  Transmission Date: 20210114
  Serious: Yes (Other)
  Sender: FDA-Public Use
  Company Number: US-MYLANLABS-2020M1101420

PATIENT
  Sex: Female
  Weight: 111 kg

DRUGS (8)
  1. VITAMIN D                          /00107901/ [Concomitant]
     Active Substance: ERGOCALCIFEROL
     Dosage: UNK
  2. ESTRADIOL TRANSDERMAL SYSTEM [Suspect]
     Active Substance: ESTRADIOL
     Indication: MENOPAUSAL SYMPTOMS
  3. ESTRADIOL TRANSDERMAL SYSTEM [Suspect]
     Active Substance: ESTRADIOL
     Indication: HOT FLUSH
     Dosage: 0.037 MILLIGRAM, QD
     Route: 062
     Dates: start: 2020, end: 202009
  4. ADDERALL [Concomitant]
     Active Substance: AMPHETAMINE ASPARTATE\AMPHETAMINE SULFATE\DEXTROAMPHETAMINE SACCHARATE\DEXTROAMPHETAMINE SULFATE
  5. MAGNESIUM [Concomitant]
     Active Substance: MAGNESIUM
     Dosage: UNK
  6. VITAMIN B12 [Concomitant]
     Active Substance: CYANOCOBALAMIN
  7. VITAMIN C [Concomitant]
     Active Substance: ASCORBIC ACID
     Dosage: UNK
  8. FISH OIL [Concomitant]
     Active Substance: FISH OIL

REACTIONS (7)
  - Speech disorder [Recovering/Resolving]
  - Illness [Recovering/Resolving]
  - Abnormal behaviour [Recovering/Resolving]
  - Memory impairment [Recovering/Resolving]
  - Swelling [Recovered/Resolved]
  - Nightmare [Not Recovered/Not Resolved]
  - Dementia [Recovering/Resolving]

NARRATIVE: CASE EVENT DATE: 2020
